FAERS Safety Report 20948449 (Version 2)
Quarter: 2022Q2

REPORT INFORMATION
  Report Type: Spontaneous
  Country: BD (occurrence: None)
  Receive Date: 20220612
  Receipt Date: 20220623
  Transmission Date: 20220721
  Serious: Yes (Death, Life-Threatening)
  Sender: FDA-Public Use
  Company Number: BD-ROCHE-3115466

PATIENT
  Age: 84 Year
  Sex: Male

DRUGS (1)
  1. MABTHERA [Suspect]
     Active Substance: RITUXIMAB
     Indication: Product used for unknown indication
     Dosage: 500MG/50ML + 100MG/10ML, CONCENTRATE FOR SOLN FOR INFUSION
     Route: 041
     Dates: start: 20220608

REACTIONS (2)
  - Hypoxia [Unknown]
  - Death [Fatal]

NARRATIVE: CASE EVENT DATE: 20220608
